FAERS Safety Report 26025586 (Version 1)
Quarter: 2025Q4

REPORT INFORMATION
  Report Type: Spontaneous
  Country: EU (occurrence: EU)
  Receive Date: 20251111
  Receipt Date: 20251111
  Transmission Date: 20260117
  Serious: Yes (Hospitalization, Other)
  Sender: ACCORD
  Company Number: EU-Accord-512346

PATIENT
  Age: 29 Year
  Sex: Male

DRUGS (1)
  1. DIMETHYL FUMARATE [Suspect]
     Active Substance: DIMETHYL FUMARATE
     Indication: Relapsing-remitting multiple sclerosis
     Dosage: 4 YEARS

REACTIONS (3)
  - Cytomegalovirus infection [Recovering/Resolving]
  - Splenomegaly [Unknown]
  - Hepatic enzyme increased [Recovering/Resolving]
